FAERS Safety Report 8425591-5 (Version None)
Quarter: 2012Q2

REPORT INFORMATION
  Report Type: 
  Country: None (occurrence: None)
  Receive Date: 20120605
  Receipt Date: 20120529
  Transmission Date: 20120825
  Serious: Yes (Disabling)
  Sender: FDA-Public Use
  Company Number: 2012-002019

PATIENT
  Sex: Female
  Weight: 45.8 kg

DRUGS (2)
  1. ACTONEL [Suspect]
     Dosage: 15 MG ONE DOSE ONLY, ORAL
     Route: 048
  2. NORVASC [Concomitant]

REACTIONS (6)
  - ASTHENIA [None]
  - PAIN [None]
  - DIZZINESS [None]
  - ABDOMINAL DISCOMFORT [None]
  - FATIGUE [None]
  - HEADACHE [None]
